FAERS Safety Report 15637619 (Version 1)
Quarter: 2018Q4

REPORT INFORMATION
  Report Type: Spontaneous
  Country: US (occurrence: US)
  Receive Date: 20181120
  Receipt Date: 20181120
  Transmission Date: 20190205
  Serious: No
  Sender: FDA-Public Use
  Company Number: US-JNJFOC-20180602082

PATIENT
  Sex: Male

DRUGS (11)
  1. KENALOG [Concomitant]
     Active Substance: TRIAMCINOLONE ACETONIDE
  2. IMBRUVICA [Suspect]
     Active Substance: IBRUTINIB
     Indication: CHRONIC LYMPHOCYTIC LEUKAEMIA
     Route: 065
  3. XANAX [Concomitant]
     Active Substance: ALPRAZOLAM
  4. BISMUTH SUBSALICYLATE. [Concomitant]
     Active Substance: BISMUTH SUBSALICYLATE
     Route: 048
  5. DESYREL [Concomitant]
     Active Substance: TRAZODONE HYDROCHLORIDE
  6. PNEUMOCOCCAL POLYSACCHARIDE VACCINE [Concomitant]
     Active Substance: PNEUMOCOCCAL VACCINE POLYVALENT
     Dates: start: 20130410
  7. ASPIRIN. [Concomitant]
     Active Substance: ASPIRIN
  8. NICODERM CQ [Concomitant]
     Active Substance: NICOTINE
     Dosage: 21MG/ 24 HR PATCH
  9. NICORETTE MINT [Concomitant]
     Active Substance: NICOTINE
  10. KENALOG [Concomitant]
     Active Substance: TRIAMCINOLONE ACETONIDE
  11. PNEUMOCOCCAL CONJUGATE VACCINE [Concomitant]
     Active Substance: PNEUMOCOCCAL VACCINE POLYVALENT
     Dates: start: 20170830

REACTIONS (7)
  - Off label use [Unknown]
  - Incorrect dose administered [Unknown]
  - Insomnia [Unknown]
  - Type V hyperlipidaemia [Unknown]
  - Generalised anxiety disorder [Unknown]
  - Peripheral arterial occlusive disease [Unknown]
  - Intermittent claudication [Unknown]
